FAERS Safety Report 9407231 (Version 3)
Quarter: 2015Q2

REPORT INFORMATION
  Report Type: Spontaneous
  Country: US (occurrence: US)
  Receive Date: 20130718
  Receipt Date: 20150608
  Transmission Date: 20150821
  Serious: Yes (Congenital Anomaly, Other)
  Sender: FDA-Public Use
  Company Number: US-PFIZER INC-2013208819

PATIENT
  Sex: Female

DRUGS (4)
  1. IRON [Concomitant]
     Active Substance: IRON
     Dosage: UNK
     Route: 064
  2. SERTRALINE HCL [Suspect]
     Active Substance: SERTRALINE HYDROCHLORIDE
     Dosage: UNK
     Route: 064
     Dates: start: 201102
  3. TYLENOL [Concomitant]
     Active Substance: ACETAMINOPHEN
     Dosage: UNK
     Route: 064
  4. PRENATAL VITAMINS [Concomitant]
     Active Substance: VITAMINS
     Dosage: UNK
     Route: 064

REACTIONS (8)
  - Microcephaly [Unknown]
  - Lung disorder [Unknown]
  - Congenital hydrocephalus [Unknown]
  - Hypotonia [Unknown]
  - Maternal exposure during pregnancy [Unknown]
  - Torticollis [Unknown]
  - Trichorhinophalangeal syndrome [Unknown]
  - Macrocephaly [Unknown]

NARRATIVE: CASE EVENT DATE: 201108
